FAERS Safety Report 4324868-2 (Version None)
Quarter: 2004Q1

REPORT INFORMATION
  Report Type: 
  Country: None (occurrence: None)
  Receive Date: 20040323
  Receipt Date: 20031117
  Transmission Date: 20041129
  Serious: No
  Sender: FDA-Public Use
  Company Number: M03-341-096

PATIENT
  Age: 75 Year
  Sex: Female
  Weight: 54 kg

DRUGS (6)
  1. VELCADE [Suspect]
     Indication: MULTIPLE MYELOMA
     Dosage: 1.0 MG/M2 BIW: INTRAVENOUS BOLUS
     Route: 040
     Dates: start: 20030909, end: 20030919
  2. ACETYSALICYCLIC ACID [Concomitant]
  3. ATENOLOL [Concomitant]
  4. HYDRALAZINE HCL [Concomitant]
  5. ISOSORBIDE [Concomitant]
  6. SIMVASTATIN [Concomitant]

REACTIONS (4)
  - BLISTER [None]
  - FATIGUE [None]
  - PAIN [None]
  - RASH ERYTHEMATOUS [None]
